FAERS Safety Report 4650857-4 (Version None)
Quarter: 2005Q2

REPORT INFORMATION
  Report Type: 
  Country: None (occurrence: None)
  Receive Date: 20050429
  Receipt Date: 20050421
  Transmission Date: 20051028
  Serious: Yes (Life-Threatening, Other)
  Sender: FDA-Public Use
  Company Number: 200510810BWH

PATIENT
  Age: 70 Year
  Sex: Male

DRUGS (4)
  1. TRASYLOL [Suspect]
     Indication: CORONARY ARTERY SURGERY
     Dosage: INTRAVENOUS
     Route: 042
     Dates: start: 20050419
  2. TRASYLOL [Suspect]
     Indication: MITRAL VALVE REPLACEMENT
     Dosage: INTRAVENOUS
     Route: 042
     Dates: start: 20050419
  3. PROTAMINE [Concomitant]
  4. HEPARIN [Concomitant]

REACTIONS (6)
  - BLOOD PRESSURE DECREASED [None]
  - CORONARY ARTERY SURGERY [None]
  - DRUG EFFECT DECREASED [None]
  - POST PROCEDURAL HAEMORRHAGE [None]
  - RIGHT VENTRICULAR FAILURE [None]
  - VASCULAR GRAFT COMPLICATION [None]
